FAERS Safety Report 4844509-5 (Version None)
Quarter: 2005Q4

REPORT INFORMATION
  Report Type: 
  Country: None (occurrence: None)
  Receive Date: 20051203
  Receipt Date: 20050824
  Transmission Date: 20060501
  Serious: Yes (Hospitalization, Other)
  Sender: FDA-Public Use
  Company Number: PHEH2005US09432

PATIENT
  Age: 81 Year
  Sex: Male
  Weight: 63.945 kg

DRUGS (7)
  1. ZOMETA [Suspect]
     Dosage: 4 MG, Q 3 MONTHS
     Route: 042
     Dates: start: 20050405, end: 20050726
  2. LUPRON [Concomitant]
  3. MICRONASE [Concomitant]
  4. ACTOS [Concomitant]
  5. LANOXIN [Concomitant]
  6. EULEXIN [Concomitant]
  7. DETROL [Concomitant]

REACTIONS (2)
  - MULTIPLE MYELOMA [None]
  - PANCYTOPENIA [None]
